FAERS Safety Report 6438562-5 (Version None)
Quarter: 2009Q4

REPORT INFORMATION
  Report Type: 
  Country: None (occurrence: None)
  Receive Date: 20091112
  Receipt Date: 20090824
  Transmission Date: 20100525
  Serious: No
  Sender: FDA-Public Use
  Company Number: US-ALLERGAN-0911819US

PATIENT
  Age: 81 Year
  Sex: Female

DRUGS (2)
  1. COMBIGAN [Suspect]
     Indication: GLAUCOMA
     Dosage: 1 GTT, BID
     Route: 047
     Dates: start: 20090721, end: 20090823
  2. XANAX [Concomitant]
     Indication: ANXIETY

REACTIONS (3)
  - ANXIETY [None]
  - HEADACHE [None]
  - MYALGIA [None]
